FAERS Safety Report 8975070 (Version 1)
Quarter: 2012Q4

REPORT INFORMATION
  Report Type: 
  Country: AR (occurrence: AR)
  Receive Date: 20121219
  Receipt Date: 20121219
  Transmission Date: 20130627
  Serious: Yes (Death)
  Sender: FDA-Public Use
  Company Number: PHHY2012AR116769

PATIENT
  Age: 88 Year
  Sex: Female

DRUGS (1)
  1. EXELON PATCH [Suspect]
     Dosage: 4.6 mg, daily
     Route: 062

REACTIONS (2)
  - Cardiac disorder [Fatal]
  - Cardiac arrest [Fatal]
